FAERS Safety Report 10404166 (Version 1)
Quarter: 2014Q1

REPORT INFORMATION
  Report Type: Spontaneous
  Country: US (occurrence: None)
  Receive Date: 20130916
  Receipt Date: 20130916
  Transmission Date: 20141002
  Serious: Yes (Other)
  Sender: FDA-Public Use
  Company Number: JPI-P-029108

PATIENT
  Age: 41 Year
  Sex: Female

DRUGS (1)
  1. XYREM [Suspect]
     Indication: NARCOLEPSY
     Dosage: 4.5 GM (2.25 GM, 2 IN 1 D), ORAL
     Route: 048
     Dates: start: 20130104

REACTIONS (3)
  - Loss of consciousness [None]
  - Hypotension [None]
  - Vomiting [None]
